FAERS Safety Report 5005689-4 (Version None)
Quarter: 2006Q2

REPORT INFORMATION
  Report Type: 
  Country: None (occurrence: None)
  Receive Date: 20060517
  Receipt Date: 20060517
  Transmission Date: 20061013
  Serious: Yes (Hospitalization)
  Sender: FDA-Public Use
  Company Number: None

PATIENT
  Age: 63 Year
  Sex: Male

DRUGS (3)
  1. GLEEVEC [Suspect]
     Indication: GLIOBLASTOMA MULTIFORME
     Dosage: 400 MG  QD  PO
     Route: 048
     Dates: start: 20060309, end: 20060502
  2. HYDROXYUREA [Suspect]
     Indication: GLIOBLASTOMA MULTIFORME
     Dosage: 500 MG BID  BID  PO
     Route: 048
     Dates: start: 20060309, end: 20060502
  3. RAD001 [Suspect]
     Dosage: 2.5 MG  QOD  PO
     Route: 048

REACTIONS (19)
  - ANAEMIA [None]
  - ANOREXIA [None]
  - BRONCHOALVEOLAR LAVAGE ABNORMAL [None]
  - CANDIDIASIS [None]
  - CENTRAL NERVOUS SYSTEM NEOPLASM [None]
  - DECREASED APPETITE [None]
  - DRUG INEFFECTIVE [None]
  - DYSPHAGIA [None]
  - HYPONATRAEMIA [None]
  - ILEUS [None]
  - INFLAMMATION [None]
  - LEUKOPENIA [None]
  - ORAL CANDIDIASIS [None]
  - PNEUMOCYSTIS JIROVECI INFECTION [None]
  - PNEUMONIA [None]
  - PNEUMONITIS [None]
  - SINUSITIS [None]
  - THROMBOCYTOPENIA [None]
  - UPPER RESPIRATORY TRACT INFECTION [None]
